FAERS Safety Report 13183355 (Version 1)
Quarter: 2017Q1

REPORT INFORMATION
  Report Type: Spontaneous
  Country: US (occurrence: US)
  Receive Date: 20170203
  Receipt Date: 20170203
  Transmission Date: 20170428
  Serious: No
  Sender: FDA-Public Use
  Company Number: None

PATIENT
  Sex: Female

DRUGS (1)
  1. CREST PRO-HEALTH ADVANCED [Suspect]
     Active Substance: STANNOUS FLUORIDE

REACTIONS (6)
  - Ageusia [None]
  - Tongue discolouration [None]
  - Throat irritation [None]
  - Product taste abnormal [None]
  - Tongue disorder [None]
  - Glossitis [None]
